FAERS Safety Report 4503664-7 (Version None)
Quarter: 2004Q3

REPORT INFORMATION
  Report Type: 
  Country: None (occurrence: None)
  Receive Date: 20040928
  Receipt Date: 20040611
  Transmission Date: 20050211
  Serious: No
  Sender: FDA-Public Use
  Company Number: 04P-163-0263575-00

PATIENT
  Age: 70 Year
  Sex: Female
  Weight: 55.7924 kg

DRUGS (17)
  1. HUMIRA [Suspect]
     Indication: RHEUMATOID ARTHRITIS
     Dosage: 40 MG, SUBCUTANEOUS
     Route: 058
     Dates: start: 20040212
  2. METHOTREXATE SODIUM [Concomitant]
  3. PROPACET 100 [Concomitant]
  4. CELECOXIB [Concomitant]
  5. CALCIUM [Concomitant]
  6. PROVELLA-14 [Concomitant]
  7. ACETYLSALICYLIC ACID [Concomitant]
  8. IRON [Concomitant]
  9. ASCORBIC ACID [Concomitant]
  10. IRON [Concomitant]
  11. SALBUTAMOL [Concomitant]
  12. THEOPHYLLINE [Concomitant]
  13. DILTIAZEM HYDROCHLORIDE [Concomitant]
  14. OMEPRAZOLE [Concomitant]
  15. PRAVASTATIN SODIUM [Concomitant]
  16. METFORMIN HCL [Concomitant]
  17. FOLIC ACID [Concomitant]

REACTIONS (3)
  - ARTHRALGIA [None]
  - ASTHENIA [None]
  - PAIN EXACERBATED [None]
